FAERS Safety Report 4732825-7 (Version None)
Quarter: 2005Q3

REPORT INFORMATION
  Report Type: 
  Country: None (occurrence: None)
  Receive Date: 20050801
  Receipt Date: 20050721
  Transmission Date: 20060218
  Serious: Yes (Life-Threatening, Hospitalization)
  Sender: FDA-Public Use
  Company Number: 2005-07-0483

PATIENT
  Age: 38 Year
  Sex: Female

DRUGS (4)
  1. AERIUS (DESLORATADINE) TABLETS [Suspect]
     Indication: EYE SWELLING
     Dosage: 5 MG ORAL
     Route: 048
     Dates: start: 20050711, end: 20050711
  2. AERIUS (DESLORATADINE) TABLETS [Suspect]
     Indication: SEASONAL ALLERGY
     Dosage: 5 MG ORAL
     Route: 048
     Dates: start: 20050711, end: 20050711
  3. LIVOSTIN OPHTHALMICSOLUTION [Concomitant]
  4. STESOLID [Concomitant]

REACTIONS (5)
  - COLD SWEAT [None]
  - CONVERSION DISORDER [None]
  - HYPERVENTILATION [None]
  - REFUSAL OF TREATMENT BY PATIENT [None]
  - RESPIRATORY ARREST [None]
